FAERS Safety Report 6353364-6 (Version None)
Quarter: 2009Q3

REPORT INFORMATION
  Report Type: 
  Country: None (occurrence: None)
  Receive Date: 20090912
  Receipt Date: 20090622
  Transmission Date: 20100115
  Serious: No
  Sender: FDA-Public Use
  Company Number: US-ABBOTT-08P-163-0474490-00

PATIENT
  Sex: Female
  Weight: 69.008 kg

DRUGS (9)
  1. HUMIRA [Suspect]
     Indication: CROHN'S DISEASE
     Route: 058
     Dates: start: 20060101, end: 20080101
  2. HUMIRA [Suspect]
     Route: 058
  3. HUMIRA [Suspect]
     Route: 058
  4. HUMIRA [Suspect]
     Route: 058
     Dates: start: 20080101
  5. ESCITALOPRAM OXALATE [Concomitant]
     Indication: DEPRESSION
     Route: 048
     Dates: start: 20020101
  6. MESALAZINE [Concomitant]
     Indication: CROHN'S DISEASE
     Route: 048
     Dates: start: 20040101
  7. BIRTH CONTROL [Concomitant]
     Indication: PROPHYLAXIS
     Route: 048
     Dates: start: 20030101
  8. IMODIUM [Concomitant]
     Indication: CROHN'S DISEASE
     Route: 048
     Dates: start: 20070101
  9. PHENTERMINE HYDROCHLORIDE [Concomitant]
     Indication: WEIGHT DECREASED
     Route: 048
     Dates: start: 20080826

REACTIONS (6)
  - CROHN'S DISEASE [None]
  - DIARRHOEA [None]
  - DRUG DELIVERY SYSTEM MALFUNCTION [None]
  - INCORRECT DOSE ADMINISTERED [None]
  - INJECTION SITE PAIN [None]
  - INJECTION SITE REACTION [None]
